FAERS Safety Report 19363655 (Version 1)
Quarter: 2021Q2

REPORT INFORMATION
  Report Type: Spontaneous
  Country: US (occurrence: US)
  Receive Date: 20210603
  Receipt Date: 20210603
  Transmission Date: 20210717
  Serious: Yes (Hospitalization)
  Sender: FDA-Public Use
  Company Number: US-HIKMA PHARMACEUTICALS USA INC.-US-H14001-21-02492

PATIENT
  Age: 72 Year
  Sex: Male
  Weight: 84 kg

DRUGS (5)
  1. LEUCOVORIN. [Suspect]
     Active Substance: LEUCOVORIN
     Indication: CHOLANGIOCARCINOMA
     Route: 042
     Dates: start: 20210412
  2. NANOLIPOSOMAL IRINOTECAN [Suspect]
     Active Substance: IRINOTECAN
     Indication: CHOLANGIOCARCINOMA
     Route: 042
     Dates: start: 20210412
  3. NIVOLUMAB [Suspect]
     Active Substance: NIVOLUMAB
     Indication: CHOLANGIOCARCINOMA
     Route: 042
     Dates: start: 20210412
  4. FLUOROURACIL. [Suspect]
     Active Substance: FLUOROURACIL
     Indication: CHOLANGIOCARCINOMA
     Route: 042
     Dates: start: 20210412
  5. CIPROFLOXACIN. [Suspect]
     Active Substance: CIPROFLOXACIN
     Indication: CHOLANGIOCARCINOMA
     Dosage: UNKNOWN
     Route: 065

REACTIONS (9)
  - Nausea [Recovering/Resolving]
  - Small intestinal obstruction [Recovered/Resolved]
  - Colitis [Recovered/Resolved]
  - Fluid imbalance [Recovering/Resolving]
  - Diarrhoea [Recovering/Resolving]
  - Vomiting [Recovering/Resolving]
  - Inflammatory bowel disease [Recovered/Resolved]
  - Abdominal distension [Recovering/Resolving]
  - Biopsy small intestine [Recovering/Resolving]

NARRATIVE: CASE EVENT DATE: 20210421
